FAERS Safety Report 20032152 (Version 1)
Quarter: 2021Q4

REPORT INFORMATION
  Report Type: Spontaneous
  Country: SA (occurrence: SA)
  Receive Date: 20211103
  Receipt Date: 20211103
  Transmission Date: 20220304
  Serious: Yes (Hospitalization)
  Sender: FDA-Public Use
  Company Number: SA-MLMSERVICE-20211025-3182470-1

PATIENT
  Age: 4 Year
  Sex: Male
  Weight: 14 kg

DRUGS (1)
  1. DEXAMETHASONE [Suspect]
     Active Substance: DEXAMETHASONE
     Indication: Croup infectious
     Dosage: SINGLE DOSE
     Route: 042

REACTIONS (1)
  - Substance-induced psychotic disorder [Recovered/Resolved]
